FAERS Safety Report 8744370 (Version 4)
Quarter: 2013Q2

REPORT INFORMATION
  Report Type: Spontaneous
  Country: US (occurrence: US)
  Receive Date: 20120825
  Receipt Date: 20130626
  Transmission Date: 20140414
  Serious: Yes (Hospitalization)
  Sender: FDA-Public Use
  Company Number: US-009507513-1208USA002479

PATIENT
  Age: 57 Year
  Sex: Female

DRUGS (9)
  1. VICTRELIS [Suspect]
     Indication: HEPATITIS C
     Dosage: UNK
     Route: 048
     Dates: start: 20120722, end: 20121022
  2. REBETOL [Suspect]
     Indication: HEPATITIS C
     Dosage: UNK
     Route: 048
     Dates: start: 20120619
  3. PEGASYS [Suspect]
     Indication: HEPATITIS C
     Dosage: UNK
     Dates: start: 20120619, end: 20130507
  4. METFORMIN [Concomitant]
     Indication: DIABETES MELLITUS
     Dosage: 500 MG, 500 MG: 2 A.M. AT BREAKFAST AND 1 AT DINNER
  5. LISINOPRIL [Concomitant]
     Indication: HYPERTENSION
     Dosage: 30 MG, QD
  6. LEVETIRACETAM [Concomitant]
     Indication: CONVULSION
     Dosage: 750 MG, 750 MG A.M. AND P.M.
  7. GABAPENTIN [Concomitant]
     Indication: CONVULSION
     Dosage: 400 MG, BID
  8. LEVOTHYROXINE SODIUM [Concomitant]
     Indication: THYROID DISORDER
     Dosage: 0.075 MG, QD
  9. ACYCLOVIR [Concomitant]
     Indication: HERPES VIRUS INFECTION
     Dosage: 200 MG, PRN
     Route: 048

REACTIONS (31)
  - Leukopenia [Unknown]
  - Dizziness [Unknown]
  - Pyrexia [Unknown]
  - Dehydration [Unknown]
  - Pneumonia [Unknown]
  - Stomatitis [Unknown]
  - Fatigue [Unknown]
  - Decreased appetite [Unknown]
  - Dry mouth [Unknown]
  - Tooth extraction [Unknown]
  - Malaise [Unknown]
  - Toothache [Unknown]
  - Dizziness [Unknown]
  - Asthenia [Unknown]
  - Dizziness [Unknown]
  - Hypertension [Unknown]
  - Heart rate increased [Unknown]
  - Dysgeusia [Unknown]
  - Tooth infection [Unknown]
  - Gastrooesophageal reflux disease [Unknown]
  - Flatulence [Unknown]
  - Therapy cessation [Unknown]
  - Haemorrhage [Recovered/Resolved]
  - Confusional state [Unknown]
  - Constipation [Unknown]
  - Diarrhoea [Unknown]
  - Hypoaesthesia [Unknown]
  - Speech disorder [Unknown]
  - Asthenia [Unknown]
  - Rash [Unknown]
  - Decreased appetite [Unknown]
